FAERS Safety Report 25045654 (Version 1)
Quarter: 2025Q1

REPORT INFORMATION
  Report Type: Spontaneous
  Country: TZ (occurrence: TZ)
  Receive Date: 20250306
  Receipt Date: 20250306
  Transmission Date: 20250409
  Serious: Yes (Other)
  Sender: MYLAN
  Company Number: TZ-MYLANLABS-2025M1018593

PATIENT
  Age: 7 Year
  Sex: Male

DRUGS (3)
  1. PHENYTOIN [Suspect]
     Active Substance: PHENYTOIN
     Indication: Epileptic encephalopathy
  2. VALPROATE SODIUM [Suspect]
     Active Substance: VALPROATE SODIUM
     Indication: Epileptic encephalopathy
     Dosage: 500 MILLIGRAM, BID
  3. CARBAMAZEPINE [Suspect]
     Active Substance: CARBAMAZEPINE
     Indication: Epileptic encephalopathy

REACTIONS (1)
  - Drug ineffective [Unknown]
